FAERS Safety Report 5608758-0 (Version None)
Quarter: 2008Q1

REPORT INFORMATION
  Report Type: 
  Country: None (occurrence: None)
  Receive Date: 20080131
  Receipt Date: 20080122
  Transmission Date: 20080703
  Serious: Yes (Hospitalization, Other)
  Sender: FDA-Public Use
  Company Number: US-JNJFOC-20080106094

PATIENT
  Sex: Male
  Weight: 136.08 kg

DRUGS (6)
  1. DURAGESIC-100 [Suspect]
     Indication: BACK PAIN
     Route: 062
  2. ATENOLOL [Concomitant]
     Indication: HYPERTENSION
     Route: 048
  3. ZYPREXA [Concomitant]
     Route: 048
  4. CELEBREX [Concomitant]
     Indication: INFLAMMATION
     Route: 048
  5. TOPAMAX [Concomitant]
     Indication: CONVULSION
     Route: 048
  6. WELLBUTRIN XL [Concomitant]
     Indication: DEPRESSION
     Route: 048

REACTIONS (8)
  - BACK PAIN [None]
  - CONDITION AGGRAVATED [None]
  - HYPERCHOLESTEROLAEMIA [None]
  - HYPERTENSION [None]
  - INAPPROPRIATE SCHEDULE OF DRUG ADMINISTRATION [None]
  - MUSCLE SPASMS [None]
  - NAUSEA [None]
  - WRONG TECHNIQUE IN DRUG USAGE PROCESS [None]
